FAERS Safety Report 24566771 (Version 4)
Quarter: 2025Q1

REPORT INFORMATION
  Report Type: Spontaneous
  Country: US (occurrence: US)
  Receive Date: 20241030
  Receipt Date: 20250103
  Transmission Date: 20250409
  Serious: Yes (Hospitalization)
  Sender: PFIZER
  Company Number: US-PFIZER INC-202400289276

PATIENT
  Age: 81 Year
  Sex: Female
  Weight: 89.796 kg

DRUGS (1)
  1. AZITHROMYCIN [Suspect]
     Active Substance: AZITHROMYCIN
     Indication: Tooth infection
     Dosage: 250, 1X/DAY
     Route: 048

REACTIONS (4)
  - Diarrhoea [Unknown]
  - Gastrointestinal injury [Unknown]
  - Gastrointestinal haemorrhage [Unknown]
  - Haematoma [Unknown]

NARRATIVE: CASE EVENT DATE: 20240930
